FAERS Safety Report 15560293 (Version 1)
Quarter: 2018Q4

REPORT INFORMATION
  Report Type: Spontaneous
  Country: US (occurrence: US)
  Receive Date: 20181029
  Receipt Date: 20181029
  Transmission Date: 20190205
  Serious: Yes (Hospitalization)
  Sender: FDA-Public Use
  Company Number: US-APOTEX-2018AP023175

PATIENT
  Age: 56 Year
  Sex: Male

DRUGS (4)
  1. CEFOXITIN [Concomitant]
     Active Substance: CEFOXITIN SODIUM
     Indication: MYCOBACTERIUM ABSCESSUS INFECTION
     Dosage: 2 G, Q.6H
     Route: 065
  2. CLARITHROMYCIN. [Suspect]
     Active Substance: CLARITHROMYCIN
     Indication: MYCOBACTERIUM ABSCESSUS INFECTION
     Dosage: 500 MG, BID
     Route: 048
  3. LINEZOLID. [Concomitant]
     Active Substance: LINEZOLID
     Indication: MYCOBACTERIUM ABSCESSUS INFECTION
     Dosage: 600 MG, QD
     Route: 048
  4. CEFOXITIN [Concomitant]
     Active Substance: CEFOXITIN SODIUM
     Dosage: 2 MG, BID
     Route: 065

REACTIONS (1)
  - Drug resistance [Unknown]
